FAERS Safety Report 7401123-5 (Version None)
Quarter: 2011Q2

REPORT INFORMATION
  Report Type: 
  Country: None (occurrence: None)
  Receive Date: 20110407
  Receipt Date: 20101014
  Transmission Date: 20111010
  Serious: Yes (Other)
  Sender: FDA-Public Use
  Company Number: US-BAYER-201033824NA

PATIENT
  Sex: Female
  Weight: 84 kg

DRUGS (11)
  1. YASMIN [Suspect]
     Indication: PRODUCT USED FOR UNKNOWN INDICATION
     Dosage: UNK
     Route: 048
     Dates: start: 20080101, end: 20090101
  2. LISINOPRIL [Concomitant]
     Dosage: UNK, UNK
     Route: 048
  3. CHANTIX [Concomitant]
     Dosage: 0.5 MG, UNK
     Route: 048
  4. PHENTERMINE [Concomitant]
     Dosage: 37.5 MG, UNK
     Route: 048
  5. YAZ [Suspect]
     Indication: PRODUCT USED FOR UNKNOWN INDICATION
     Dosage: UNK
     Route: 048
     Dates: start: 20080101, end: 20090101
  6. HYDROCHLOROTHIAZIDE [Concomitant]
     Dosage: 25 MG, UNK
     Route: 048
  7. CYMBALTA [Concomitant]
     Dosage: 30 MG, UNK
     Route: 048
  8. SEROQUEL [Concomitant]
     Dosage: 100 MG, UNK
     Route: 048
  9. LEXAPRO [Concomitant]
     Dosage: UNK
  10. CHANTIX [Concomitant]
     Dosage: 1 MG, UNK
     Route: 048
  11. OCELLA [Suspect]
     Indication: PRODUCT USED FOR UNKNOWN INDICATION
     Route: 048

REACTIONS (4)
  - INJURY [None]
  - PAIN [None]
  - CHOLECYSTECTOMY [None]
  - CHOLELITHIASIS [None]
